FAERS Safety Report 5733310-6 (Version None)
Quarter: 2008Q2

REPORT INFORMATION
  Report Type: 
  Country: None (occurrence: None)
  Receive Date: 20080509
  Receipt Date: 20080428
  Transmission Date: 20081010
  Serious: Yes (Other)
  Sender: FDA-Public Use
  Company Number: NSADSS2002046211

PATIENT
  Sex: Male

DRUGS (9)
  1. REMICADE [Suspect]
     Route: 042
     Dates: start: 20011114
  2. REMICADE [Suspect]
     Indication: PSORIATIC ARTHROPATHY
     Route: 042
     Dates: start: 20011114
  3. PLACEBO [Suspect]
     Route: 041
     Dates: start: 20011114
  4. PLACEBO [Suspect]
     Indication: PSORIATIC ARTHROPATHY
     Route: 041
     Dates: start: 20011114
  5. METHOTREXATE [Concomitant]
     Route: 048
     Dates: start: 20010822
  6. METHOTREXATE [Concomitant]
     Indication: PSORIATIC ARTHROPATHY
     Route: 048
     Dates: start: 20010822
  7. FOLIC ACID [Concomitant]
     Route: 048
     Dates: start: 20010822
  8. BEROTEC [Concomitant]
     Dates: start: 20020523
  9. ISONIAZID [Concomitant]
     Dates: start: 20021015

REACTIONS (3)
  - ALANINE AMINOTRANSFERASE INCREASED [None]
  - BLOOD BILIRUBIN INCREASED [None]
  - TUBERCULOSIS [None]
